FAERS Safety Report 6804278-6 (Version None)
Quarter: 2010Q2

REPORT INFORMATION
  Report Type: 
  Country: None (occurrence: None)
  Receive Date: 20100628
  Receipt Date: 20070308
  Transmission Date: 20101027
  Serious: No
  Sender: FDA-Public Use
  Company Number: US-PFIZER INC-2007019441

PATIENT
  Sex: Female
  Weight: 63.5 kg

DRUGS (5)
  1. CADUET [Suspect]
     Indication: RAYNAUD'S PHENOMENON
     Dosage: 10MG/10MG; 10MG/10MG
     Dates: start: 20060901
  2. CELEBREX [Concomitant]
  3. LYRICA [Concomitant]
     Indication: FIBROMYALGIA
  4. CYMBALTA [Concomitant]
     Indication: ANXIETY
  5. HYDROXYCHLOROQUINE [Concomitant]
     Indication: ARTHRITIS

REACTIONS (3)
  - INTENTIONAL DRUG MISUSE [None]
  - JOINT SWELLING [None]
  - OEDEMA PERIPHERAL [None]
